FAERS Safety Report 11525085 (Version 1)
Quarter: 2015Q3

REPORT INFORMATION
  Report Type: Spontaneous
  Country: FI (occurrence: FI)
  Receive Date: 20150918
  Receipt Date: 20150918
  Transmission Date: 20151125
  Serious: Yes (Other)
  Sender: FDA-Public Use
  Company Number: FI-AMGEN-FINSP2015094958

PATIENT
  Age: 69 Year
  Sex: Female

DRUGS (6)
  1. CALCIUM [Concomitant]
     Active Substance: CALCIUM
  2. LETROZOL [Concomitant]
     Active Substance: LETROZOLE
  3. BONSTAN [Concomitant]
     Indication: PAIN
     Dosage: 500 MG, UNK
  4. XGEVA [Suspect]
     Active Substance: DENOSUMAB
     Indication: BREAST CANCER METASTATIC
     Dosage: UNK UNK, UNK
     Route: 065
     Dates: start: 201504
  5. ESOMEPRAZOL                        /01479301/ [Concomitant]
     Active Substance: ESOMEPRAZOLE
     Dosage: 20 MG, UNK
  6. DIUREX (HYDROCHLOROTHIAZIDE) [Concomitant]
     Active Substance: HYDROCHLOROTHIAZIDE

REACTIONS (7)
  - Diarrhoea [Not Recovered/Not Resolved]
  - Pain [Unknown]
  - Metastases to spine [Unknown]
  - Metastases to bone [Unknown]
  - Blood potassium abnormal [Unknown]
  - Haemoglobin abnormal [Unknown]
  - Metastases to pelvis [Unknown]
